FAERS Safety Report 15482903 (Version 5)
Quarter: 2019Q1

REPORT INFORMATION
  Report Type: Report from Study
  Country: US (occurrence: US)
  Receive Date: 20181010
  Receipt Date: 20190205
  Transmission Date: 20190417
  Serious: Yes (Other)
  Sender: FDA-Public Use
  Company Number: US-SA-2018SA278907

PATIENT
  Age: 69 Year
  Sex: Male

DRUGS (4)
  1. GABAPENTINE [Concomitant]
     Active Substance: GABAPENTIN
     Indication: PRURITUS
     Dosage: 2 DF, QD
     Dates: start: 2016
  2. DUPILUMAB [Suspect]
     Active Substance: DUPILUMAB
     Indication: DERMATITIS ATOPIC
     Dosage: 600 MG, 1X
     Route: 058
     Dates: start: 20180801
  3. HYDROXYZINE [Concomitant]
     Active Substance: HYDROXYZINE HYDROCHLORIDE
     Indication: SLEEP DISORDER
     Dosage: 1 DF, QD
     Dates: start: 2016
  4. DUPILUMAB [Suspect]
     Active Substance: DUPILUMAB
     Indication: ECZEMA
     Dosage: 300 MG, QOW
     Route: 058

REACTIONS (8)
  - Staphylococcal infection [Unknown]
  - Erythema [Unknown]
  - Scratch [Unknown]
  - Scar [Unknown]
  - Eczema [Unknown]
  - Skin fissures [Unknown]
  - Blood creatinine increased [Unknown]
  - Pruritus [Unknown]

NARRATIVE: CASE EVENT DATE: 20180914
